FAERS Safety Report 22625863 (Version 2)
Quarter: 2023Q2

REPORT INFORMATION
  Report Type: Spontaneous
  Country: US (occurrence: US)
  Receive Date: 20230621
  Receipt Date: 20230628
  Transmission Date: 20230722
  Serious: Yes (Other)
  Sender: FDA-Public Use
  Company Number: US-BIOVITRUM-2023-US-011894

PATIENT
  Age: 51 Year
  Sex: Female

DRUGS (2)
  1. KINERET [Suspect]
     Active Substance: ANAKINRA
     Indication: Pericarditis
     Dosage: ONCE A DAY
     Dates: end: 20230607
  2. KINERET [Suspect]
     Active Substance: ANAKINRA
     Indication: Behcet^s syndrome

REACTIONS (18)
  - Anaphylactic reaction [Unknown]
  - Injection site reaction [Unknown]
  - Swelling [Unknown]
  - Oedema [Unknown]
  - Swelling face [Unknown]
  - Eye swelling [Unknown]
  - Weight increased [Unknown]
  - Abdominal distension [Unknown]
  - Fluid retention [Unknown]
  - Gastric dilatation [Unknown]
  - Feeling abnormal [Unknown]
  - Intentional product misuse [Unknown]
  - Oropharyngeal discomfort [Unknown]
  - Chest pain [Unknown]
  - Dyspnoea [Unknown]
  - Dizziness [Unknown]
  - Chest discomfort [Unknown]
  - Dermatitis allergic [Unknown]

NARRATIVE: CASE EVENT DATE: 20230501
